FAERS Safety Report 21843360 (Version 1)
Quarter: 2023Q1

REPORT INFORMATION
  Report Type: Spontaneous
  Country: US (occurrence: US)
  Receive Date: 20230110
  Receipt Date: 20230110
  Transmission Date: 20230417
  Serious: No
  Sender: FDA-Public Use
  Company Number: US-PARI RESPIRATORY EQUIPMENT, INC.-2022PAR00067

PATIENT
  Age: 18 Year
  Sex: Female
  Weight: 44.989 kg

DRUGS (2)
  1. KITABIS PAK [Suspect]
     Active Substance: TOBRAMYCIN
     Indication: Cystic fibrosis
     Dosage: 5 ML (300 MG) VIA NEBULIZER, EVERY 12 HOURS FOR 28 DAYS ON AND 28 DAYS OFF
  2. IBUPROFEN [Concomitant]
     Active Substance: IBUPROFEN

REACTIONS (1)
  - Respiratory tract congestion [Unknown]

NARRATIVE: CASE EVENT DATE: 20220901
